FAERS Safety Report 22078632 (Version 2)
Quarter: 2023Q1

REPORT INFORMATION
  Report Type: Spontaneous
  Country: US (occurrence: US)
  Receive Date: 20230309
  Receipt Date: 20230328
  Transmission Date: 20230417
  Serious: Yes (Other)
  Sender: FDA-Public Use
  Company Number: US-Melinta Therapeutics, LLC-US-MLNT-23-00186

PATIENT
  Age: 55 Year
  Sex: Female
  Weight: 101 kg

DRUGS (7)
  1. KIMYRSA [Suspect]
     Active Substance: ORITAVANCIN DIPHOSPHATE
     Indication: Limb injury
     Route: 041
     Dates: start: 20221208, end: 20221208
  2. KIMYRSA [Suspect]
     Active Substance: ORITAVANCIN DIPHOSPHATE
     Indication: Skin ulcer
     Dosage: INFUSION RUNNING AT 250 ML/HOUR THEN SLOWED TO 100 ML/HOUR
     Route: 041
     Dates: start: 20221222, end: 20221222
  3. HEPARIN [Concomitant]
     Active Substance: HEPARIN SODIUM
     Indication: Product used for unknown indication
     Dosage: NOT PROVIDED.
     Route: 042
  4. TYLENOL [Concomitant]
     Active Substance: ACETAMINOPHEN
     Indication: Premedication
     Route: 048
  5. BENADRYL [Concomitant]
     Active Substance: DIPHENHYDRAMINE HYDROCHLORIDE
     Indication: Premedication
     Route: 042
  6. LEVAQUIN [Concomitant]
     Active Substance: LEVOFLOXACIN
     Indication: Product used for unknown indication
     Dosage: NOT PROVIDED
     Route: 065
  7. UNSPECIFIED INGREDIENT [Concomitant]
     Active Substance: UNSPECIFIED INGREDIENT
     Indication: Product used for unknown indication
     Dosage: NOT PROVIDED
     Route: 065

REACTIONS (15)
  - Condition aggravated [Unknown]
  - Retching [Unknown]
  - Feeling cold [Recovered/Resolved]
  - Discomfort [Recovered/Resolved]
  - Headache [Unknown]
  - Nausea [Unknown]
  - Diarrhoea [Recovered/Resolved]
  - Vomiting [Recovered/Resolved]
  - Back pain [Recovered/Resolved]
  - Tremor [Recovered/Resolved]
  - Asthenia [Recovered/Resolved]
  - Arthralgia [Unknown]
  - Chills [Unknown]
  - Adverse drug reaction [Recovered/Resolved]
  - Multiple use of single-use product [Unknown]

NARRATIVE: CASE EVENT DATE: 20221222
